FAERS Safety Report 7688821-3 (Version None)
Quarter: 2011Q3

REPORT INFORMATION
  Report Type: 
  Country: None (occurrence: None)
  Receive Date: 20110817
  Receipt Date: 20110805
  Transmission Date: 20111222
  Serious: Yes (Other)
  Sender: FDA-Public Use
  Company Number: PHHY2011BR71815

PATIENT
  Sex: Female
  Weight: 55 kg

DRUGS (5)
  1. CHANTIX [Interacting]
     Indication: SMOKING CESSATION THERAPY
     Dosage: 0.5 MG, QD
     Route: 048
     Dates: start: 20110711
  2. CLONAZEPAM [Interacting]
     Indication: INSOMNIA
     Dosage: UNK UKN, UNK
     Route: 048
  3. NITRAZEPAM [Interacting]
     Indication: DEPRESSION
     Dosage: 5 MG, QD
     Route: 048
  4. CARBAMAZEPINE [Suspect]
     Indication: DEPRESSION
     Dosage: 200 MG, BID
     Route: 048
  5. CHANTIX [Interacting]
     Dosage: 0.5 MG, BID

REACTIONS (4)
  - DRUG INTERACTION [None]
  - ANXIETY [None]
  - TREMOR [None]
  - INSOMNIA [None]
